FAERS Safety Report 23498935 (Version 1)
Quarter: 2024Q1

REPORT INFORMATION
  Report Type: Report from Study
  Country: US (occurrence: US)
  Receive Date: 20240208
  Receipt Date: 20240208
  Transmission Date: 20240410
  Serious: Yes (Other)
  Sender: FDA-Public Use
  Company Number: US-ABBVIE-5619610

PATIENT
  Sex: Male
  Weight: 113 kg

DRUGS (7)
  1. VENCLEXTA [Suspect]
     Active Substance: VENETOCLAX
     Indication: Plasma cell myeloma
     Dosage: FORM STRENGTH UNITS: 100 MILLIGRAM
     Route: 048
  2. FLONASE [Concomitant]
     Active Substance: FLUTICASONE PROPIONATE
     Indication: Product used for unknown indication
     Dosage: 50 RNCG/SPRAY NASAL SPRAY?FREQUENCY TEXT: 1 SPRAY INTO EACH NOSTRIL ONCE DAILY
  3. AUGMENTIN [Concomitant]
     Active Substance: AMOXICILLIN\CLAVULANATE POTASSIUM
     Indication: Product used for unknown indication
     Dosage: 875-125 MG PER TABLET?FREQUENCY TEXT: 1 TABLET/2 (TWO) TIMES A DAY FOR 10 DAYS
  4. FOLVITE [Concomitant]
     Active Substance: FOLIC ACID
     Indication: Product used for unknown indication
     Dosage: 1 MG TABLET?FREQUENCY TEXT:  1 TABLET BY MOUTH EVERY DAY
  5. ZOVIRAX [Concomitant]
     Active Substance: ACYCLOVIR
     Indication: Antiviral prophylaxis
     Dosage: 400 MG TABLET
  6. DECADRON [Concomitant]
     Active Substance: DEXAMETHASONE
     Indication: Product used for unknown indication
  7. NORVASC [Concomitant]
     Active Substance: AMLODIPINE BESYLATE
     Indication: Product used for unknown indication

REACTIONS (5)
  - Metastatic neoplasm [Unknown]
  - Osteolysis [Unknown]
  - Off label use [Unknown]
  - Flatulence [Unknown]
  - Spinal osteoarthritis [Unknown]
